FAERS Safety Report 5148245-X (Version None)
Quarter: 2006Q4

REPORT INFORMATION
  Report Type: 
  Country: None (occurrence: None)
  Receive Date: 20060918
  Receipt Date: 20060417
  Transmission Date: 20070319
  Serious: Yes (Other)
  Sender: FDA-Public Use
  Company Number: US-JNJFOC-20060205257

PATIENT
  Age: 84 Year
  Sex: Female
  Weight: 72.5755 kg

DRUGS (5)
  1. TOPAMAX [Suspect]
     Indication: PAIN IN EXTREMITY
     Dosage: 50 MG, 2 IN 1 DAY
     Dates: start: 20050810, end: 20050915
  2. HYDROCHLOROTHIAZIDE [Concomitant]
  3. DARVOCET [Concomitant]
  4. KLONOPIN [Concomitant]
  5. CARDIZEM [Concomitant]

REACTIONS (5)
  - ALOPECIA [None]
  - AMNESIA [None]
  - BLEPHARITIS [None]
  - VISION BLURRED [None]
  - WEIGHT DECREASED [None]
